FAERS Safety Report 5369339-X (Version None)
Quarter: 2007Q2

REPORT INFORMATION
  Report Type: 
  Country: None (occurrence: None)
  Receive Date: 20070621
  Receipt Date: 20070612
  Transmission Date: 20071010
  Serious: Yes (Hospitalization)
  Sender: FDA-Public Use
  Company Number: 2007BI012590

PATIENT
  Age: 50 Year
  Sex: Female
  Weight: 86.1834 kg

DRUGS (1)
  1. AVONEX [Suspect]
     Indication: DRUG USE FOR UNKNOWN INDICATION
     Dosage: IM
     Route: 030
     Dates: start: 19990829, end: 20070501

REACTIONS (10)
  - ABASIA [None]
  - AMNESIA [None]
  - ARTHRITIS [None]
  - ASTHMA [None]
  - BRONCHITIS [None]
  - DEPRESSION [None]
  - PNEUMONIA [None]
  - RENAL PAIN [None]
  - URINARY TRACT INFECTION [None]
  - WEIGHT INCREASED [None]
